FAERS Safety Report 9270737 (Version 2)
Quarter: 2013Q2

REPORT INFORMATION
  Report Type: Spontaneous
  Country: US (occurrence: US)
  Receive Date: 20130506
  Receipt Date: 20130529
  Transmission Date: 20140414
  Serious: Yes (Life-Threatening, Hospitalization)
  Sender: FDA-Public Use
  Company Number: US-009507513-1305USA001400

PATIENT
  Age: 35 Year
  Sex: Female
  Weight: 82.99 kg

DRUGS (1)
  1. NUVARING [Suspect]
     Indication: CONTRACEPTION
     Dosage: 0.015/0.12
     Route: 067
     Dates: start: 20120326, end: 20130416

REACTIONS (3)
  - Lower limb fracture [Recovering/Resolving]
  - Immobile [Recovering/Resolving]
  - Deep vein thrombosis [Recovered/Resolved]
